FAERS Safety Report 24449183 (Version 1)
Quarter: 2024Q4

REPORT INFORMATION
  Report Type: Spontaneous
  Country: US (occurrence: None)
  Receive Date: 20241017
  Receipt Date: 20241017
  Transmission Date: 20250115
  Serious: Yes (Hospitalization, Other)
  Sender: NATCO PHARMA
  Company Number: US-NATCOUSA-2024-NATCOUSA-000237

PATIENT
  Age: 86 Year
  Sex: Male

DRUGS (1)
  1. NITROGLYCERIN [Suspect]
     Active Substance: NITROGLYCERIN
     Indication: Angina pectoris
     Route: 060

REACTIONS (1)
  - Cardiac arrest [Recovered/Resolved]
